FAERS Safety Report 18492376 (Version 1)
Quarter: 2020Q4

REPORT INFORMATION
  Report Type: Spontaneous
  Country: JP (occurrence: JP)
  Receive Date: 20201111
  Receipt Date: 20201111
  Transmission Date: 20210114
  Serious: Yes (Death, Other)
  Sender: FDA-Public Use
  Company Number: JP-DSJP-DSJ-2020-118489

PATIENT
  Age: 81 Year
  Sex: Male

DRUGS (1)
  1. EFIENT [Suspect]
     Active Substance: PRASUGREL HYDROCHLORIDE
     Indication: PRODUCT USED FOR UNKNOWN INDICATION
     Dosage: UNK, QD
     Route: 065
     Dates: start: 201801, end: 201805

REACTIONS (3)
  - Interstitial lung disease [Fatal]
  - Respiratory failure [Fatal]
  - Pulmonary alveolar haemorrhage [Fatal]
